FAERS Safety Report 5322952-8 (Version None)
Quarter: 2007Q2

REPORT INFORMATION
  Report Type: 
  Country: None (occurrence: None)
  Receive Date: 20070511
  Receipt Date: 20070502
  Transmission Date: 20071010
  Serious: Yes (Death, Other)
  Sender: FDA-Public Use
  Company Number: JP-MERCK-0705USA01166

PATIENT
  Age: 45 Year
  Sex: Male
  Weight: 56 kg

DRUGS (5)
  1. CRIXIVAN [Suspect]
     Indication: HIV INFECTION
     Route: 048
     Dates: start: 20010827, end: 20010901
  2. RETROVIR [Suspect]
     Indication: HIV INFECTION
     Route: 065
     Dates: start: 20010827, end: 20010901
  3. EPIVIR [Suspect]
     Indication: HIV INFECTION
     Route: 048
     Dates: start: 20010827, end: 20010901
  4. [THERAPY UNSPECIFIED] [Suspect]
     Indication: CEREBRAL TOXOPLASMOSIS
     Route: 048
     Dates: start: 20010825
  5. CLINDAMYCIN HYDROCHLORIDE [Suspect]
     Indication: CEREBRAL TOXOPLASMOSIS
     Route: 048
     Dates: start: 20010825

REACTIONS (6)
  - ACUTE RESPIRATORY DISTRESS SYNDROME [None]
  - HISTOPLASMOSIS DISSEMINATED [None]
  - PANCYTOPENIA [None]
  - PNEUMONIA [None]
  - PYREXIA [None]
  - RENAL FAILURE ACUTE [None]
